FAERS Safety Report 7115890 (Version 1)
Quarter: 2020Q3

REPORT INFORMATION
  Report Type: Spontaneous
  Country: CU (occurrence: CU)
  Receive Date: 20090916
  Receipt Date: 20090916
  Transmission Date: 20201104
  Serious: Yes (Other)
  Sender: FDA-Public Use
  Company Number: CU-ROCHE-654768

PATIENT
  Age: 50 Year
  Sex: Female

DRUGS (2)
  1. IBANDRONIC ACID. [Suspect]
     Active Substance: IBANDRONIC ACID
     Indication: OSTEOPOROSIS
     Dosage: DOSE?6 MG/6 ML
     Route: 042
     Dates: start: 200905
  2. VITAMINS NOS [Concomitant]
     Active Substance: VITAMINS

REACTIONS (3)
  - Dysphonia [Not Recovered/Not Resolved]
  - Tracheitis [Not Recovered/Not Resolved]
  - Epiglottitis [Not Recovered/Not Resolved]

NARRATIVE: CASE EVENT DATE: 20090501
